FAERS Safety Report 13395399 (Version 1)
Quarter: 2017Q2

REPORT INFORMATION
  Report Type: Spontaneous
  Country: US (occurrence: US)
  Receive Date: 20170401
  Receipt Date: 20170401
  Transmission Date: 20170830
  Serious: Yes (Hospitalization, Disabling)
  Sender: FDA-Public Use
  Company Number: None

PATIENT
  Age: 64 Year
  Sex: Female
  Weight: 99.45 kg

DRUGS (7)
  1. LOSARTAN. [Concomitant]
     Active Substance: LOSARTAN
  2. BACTRIM DS [Suspect]
     Active Substance: SULFAMETHOXAZOLE\TRIMETHOPRIM
     Indication: CELLULITIS
     Dosage: ?          QUANTITY:2 TABLET(S);?
     Route: 048
  3. VITAMIN B12 [Concomitant]
     Active Substance: CYANOCOBALAMIN
  4. EXCEDRIN [Concomitant]
     Active Substance: ACETAMINOPHEN\ASPIRIN\CAFFEINE
  5. ESTRACE [Concomitant]
     Active Substance: ESTRADIOL
  6. B6 [Concomitant]
     Active Substance: PYRIDOXINE HYDROCHLORIDE
  7. FOLATE COMPLEX [Concomitant]

REACTIONS (18)
  - Migraine [None]
  - Paraesthesia [None]
  - Hypersensitivity [None]
  - Feeling abnormal [None]
  - Hyponatraemia [None]
  - Chills [None]
  - Dysphagia [None]
  - Weight decreased [None]
  - Toxicity to various agents [None]
  - Gait disturbance [None]
  - Hypoaesthesia [None]
  - Burning sensation [None]
  - Pain [None]
  - Urinary retention [None]
  - Nausea [None]
  - Gastrooesophageal reflux disease [None]
  - Neuropathy peripheral [None]
  - Constipation [None]

NARRATIVE: CASE EVENT DATE: 20161016
